FAERS Safety Report 24225412 (Version 1)
Quarter: 2024Q3

REPORT INFORMATION
  Report Type: Spontaneous
  Country: GB (occurrence: GB)
  Receive Date: 20240820
  Receipt Date: 20240820
  Transmission Date: 20241016
  Serious: Yes (Other)
  Sender: NOVO NORDISK
  Company Number: GB-MHRA-TPP40155842C178937YC1722934755009

PATIENT
  Age: 72 Year
  Sex: Male
  Weight: 83 kg

DRUGS (10)
  1. RYBELSUS [Suspect]
     Active Substance: SEMAGLUTIDE
     Indication: Diabetes mellitus
     Dosage: 3 MG, QD
     Dates: start: 20240402
  2. TRULICITY [Concomitant]
     Active Substance: DULAGLUTIDE
     Indication: Diabetes mellitus
     Dosage: INJECT ONCE WEEKLY AS DIRECTED TO CONTROL DIABETES
     Dates: start: 20240805
  3. MOUNJARO [Concomitant]
     Active Substance: TIRZEPATIDE
     Indication: Ill-defined disorder
     Dosage: INJECT ONCE WEEKLY AS DIRECTED FOR DIABETES
  4. TRELEGY ELLIPTA [Concomitant]
     Active Substance: FLUTICASONE FUROATE\UMECLIDINIUM BROMIDE\VILANTEROL TRIFENATATE
     Indication: Chronic obstructive pulmonary disease
     Dosage: INHALE 1 DOSE DAILY FOR COPD
     Dates: start: 20240402
  5. AMLODIPINE [Concomitant]
     Active Substance: AMLODIPINE BESYLATE
     Indication: Blood pressure measurement
     Dosage: ONE TO BE TAKEN DAILY TO LOWER BLOOD PRESSURE
     Dates: start: 20240402
  6. ASPIRIN [Concomitant]
     Active Substance: ASPIRIN
     Indication: Anticoagulant therapy
     Dosage: TWO TO BE TAKEN DAILY TO THIN BLOOD
     Dates: start: 20240402
  7. ATORVASTATIN [Concomitant]
     Active Substance: ATORVASTATIN
     Indication: Blood cholesterol
     Dosage: ONE TO BE TAKEN DAILY TO REDUCE CHOLESTEROL.
     Dates: start: 20240402
  8. CANDESARTAN [Concomitant]
     Active Substance: CANDESARTAN
     Indication: Blood pressure measurement
     Dosage: ONE TO BE TAKEN DAILY FOR BLOOD PRESSURE CONTROL.
     Dates: start: 20240402
  9. METFORMIN [Concomitant]
     Active Substance: METFORMIN HYDROCHLORIDE
     Indication: Diabetes mellitus
     Dosage: 1 WITH BREAKFAST AND 2 WITH DINNER FOR DIABETES
     Dates: start: 20240402
  10. VENTOLIN [Concomitant]
     Active Substance: ALBUTEROL SULFATE
     Indication: Ill-defined disorder
     Dosage: 2 PUFFS TO BE INHALED WHEN REQUIRED FOR BREATHL...
     Dates: start: 20240402

REACTIONS (2)
  - Nightmare [Recovered/Resolved]
  - Nausea [Recovered/Resolved]
